FAERS Safety Report 24319789 (Version 2)
Quarter: 2024Q3

REPORT INFORMATION
  Report Type: Spontaneous
  Country: CA (occurrence: CA)
  Receive Date: 20240914
  Receipt Date: 20240927
  Transmission Date: 20241016
  Serious: Yes (Life-Threatening, Other)
  Sender: UNITED THERAPEUTICS
  Company Number: CA-UNITED THERAPEUTICS-UNT-2024-021719

PATIENT
  Age: 7 Year
  Sex: Male

DRUGS (4)
  1. REMODULIN [Suspect]
     Active Substance: TREPROSTINIL
     Indication: Pulmonary arterial hypertension
     Dosage: APPROXIMATELY 0.094 ?G/KG, CONTINUING
  2. REMODULIN [Suspect]
     Active Substance: TREPROSTINIL
     Dosage: APPROXIMATELY 0.095 ?G/KG, CONTINUING
  3. REMODULIN [Suspect]
     Active Substance: TREPROSTINIL
     Dosage: APPROXIMATELY 0.103 ?G/KG, CONTINUING
  4. REMODULIN [Suspect]
     Active Substance: TREPROSTINIL
     Dosage: UNK, CONTINUING

REACTIONS (12)
  - Oxygen saturation decreased [Unknown]
  - Pulmonary vein stenosis [Unknown]
  - Pulmonary oedema [Unknown]
  - Infusion site discomfort [Recovering/Resolving]
  - Infusion site pruritus [Recovering/Resolving]
  - Dermatitis contact [Recovering/Resolving]
  - Scratch [Recovering/Resolving]
  - Rash pruritic [Recovering/Resolving]
  - Superficial vein prominence [Recovering/Resolving]
  - Device operational issue [Unknown]
  - Illness [Unknown]
  - Fatigue [Unknown]

NARRATIVE: CASE EVENT DATE: 20240601
